FAERS Safety Report 24007766 (Version 5)
Quarter: 2024Q3

REPORT INFORMATION
  Report Type: Spontaneous
  Country: CA (occurrence: CA)
  Receive Date: 20240625
  Receipt Date: 20240903
  Transmission Date: 20241017
  Serious: Yes (Other)
  Sender: CELLTRION
  Company Number: CA-PFIZER INC-202400103909

PATIENT

DRUGS (6)
  1. INFLECTRA [Suspect]
     Active Substance: INFLIXIMAB-DYYB
     Indication: Crohn^s disease
     Dosage: 10 MG/KG, AT 0, 2, 6 WEEKS, THEN EVERY 8 WEEKS (EVERY 8 WEEKS)
     Route: 042
     Dates: start: 20240514, end: 20240514
  2. INFLECTRA [Suspect]
     Active Substance: INFLIXIMAB-DYYB
     Dosage: 10 MG/KG, AT 0, 2, 6 WEEKS, THEN EVERY 8 WEEKS
     Route: 042
     Dates: start: 20240529, end: 20240529
  3. INFLECTRA [Suspect]
     Active Substance: INFLIXIMAB-DYYB
     Dosage: 10 MG/KG, EVERY 8 WEEKS
     Route: 042
     Dates: start: 20240703
  4. INFLECTRA [Suspect]
     Active Substance: INFLIXIMAB-DYYB
     Dosage: 10 MG/KG, EVERY 8 WEEKS
     Route: 042
     Dates: start: 20240703
  5. INFLECTRA [Suspect]
     Active Substance: INFLIXIMAB-DYYB
     Dosage: 1000 MG, EVERY 8 WEEKS
     Route: 042
     Dates: start: 20240823
  6. PREDNISONE [Concomitant]
     Active Substance: PREDNISONE
     Dosage: UNK

REACTIONS (3)
  - Pneumonia [Recovering/Resolving]
  - Diarrhoea haemorrhagic [Recovered/Resolved]
  - Off label use [Unknown]

NARRATIVE: CASE EVENT DATE: 20240601
